FAERS Safety Report 10926142 (Version 1)
Quarter: 2015Q1

REPORT INFORMATION
  Report Type: Spontaneous
  Country: US (occurrence: None)
  Receive Date: 20150316
  Receipt Date: 20150316
  Transmission Date: 20150721
  Serious: Yes (Other)
  Sender: FDA-Public Use
  Company Number: None

PATIENT
  Age: 65 Year

DRUGS (18)
  1. SYNTHROID [Concomitant]
     Active Substance: LEVOTHYROXINE SODIUM
  2. RANITIDINE [Concomitant]
     Active Substance: RANITIDINE\RANITIDINE HYDROCHLORIDE
  3. AMERICAN HEALTH PROBIOTIC ACIDOPHILUS [Concomitant]
  4. MAXALT (BRAND) [Concomitant]
  5. FLUCONISOLE [Concomitant]
  6. DYE-FREE DIPHENHYDRAMINE HYDROCHLORIDE [Concomitant]
  7. TOPAMAX (BRAND) [Concomitant]
  8. VAGIFEM TABLET SUPPOSITORIES [Concomitant]
  9. CLONAZIPAM [Concomitant]
  10. VIVELLE DOT PATCH [Concomitant]
  11. TIZANIDINE (TIZANIDINE) [Concomitant]
     Active Substance: TIZANIDINE
  12. PREDNISONE. [Concomitant]
     Active Substance: PREDNISONE
  13. GUAFENISEN [Concomitant]
  14. ESTRADIOL TRANSDERMAL SYSTEM [Suspect]
     Active Substance: ESTRADIOL
     Indication: BLOOD OESTROGEN DECREASED
     Dosage: USE ONE PATCH, APPLIED AS MEDICATED PATCH TO SKIN,TWICE PER WEEK
     Dates: start: 20150311, end: 20150312
  15. PROGESTERONE VAGINAL SUPPOSITORY (COMPOUNDED WITH OLIVE OIL, AS PEANUT OIL IS MIGRAINE TRIGGER) [Concomitant]
  16. CYCLOBENZAPRINE [Concomitant]
     Active Substance: CYCLOBENZAPRINE
  17. DOXYCYCLINE TABLETS [Concomitant]
     Active Substance: DOXYCYCLINE
  18. ZYRTEC [Concomitant]
     Active Substance: CETIRIZINE HYDROCHLORIDE

REACTIONS (7)
  - Feeling jittery [None]
  - Malaise [None]
  - Poor quality sleep [None]
  - Product substitution issue [None]
  - Heart rate increased [None]
  - Peripheral coldness [None]
  - Migraine [None]

NARRATIVE: CASE EVENT DATE: 20150311
